FAERS Safety Report 16721974 (Version 1)
Quarter: 2019Q3

REPORT INFORMATION
  Report Type: Spontaneous
  Country: AT (occurrence: AT)
  Receive Date: 20190820
  Receipt Date: 20190820
  Transmission Date: 20191005
  Serious: Yes (Death, Life-Threatening, Hospitalization, Other)
  Sender: FDA-Public Use
  Company Number: AT-ELI_LILLY_AND_COMPANY-AT201908007488

PATIENT
  Age: 71 Year
  Sex: Female
  Weight: 74 kg

DRUGS (6)
  1. ETOPOSIDE. [Suspect]
     Active Substance: ETOPOSIDE
     Indication: B-CELL LYMPHOMA
     Dosage: UNK, UNKNOWN
     Route: 065
     Dates: start: 201710
  2. OXALIPLATIN. [Suspect]
     Active Substance: OXALIPLATIN
     Indication: B-CELL LYMPHOMA
     Dosage: UNK UNK, UNKNOWN
     Route: 065
     Dates: start: 20181127
  3. CYTARABINE. [Suspect]
     Active Substance: CYTARABINE
     Indication: B-CELL LYMPHOMA
     Dosage: UNK UNK, UNKNOWN
     Route: 065
     Dates: start: 201710
  4. GEMCITABINE HYDROCHLORIDE. [Suspect]
     Active Substance: GEMCITABINE HYDROCHLORIDE
     Indication: B-CELL LYMPHOMA
     Dosage: UNK UNK, UNKNOWN
     Route: 065
     Dates: start: 20181127
  5. CYCLOPHOSPHAMIDE. [Suspect]
     Active Substance: CYCLOPHOSPHAMIDE
     Indication: NON-HODGKIN^S LYMPHOMA
     Dosage: UNK, UNKNOWN
     Route: 042
     Dates: start: 20181210
  6. FLUDARABINE [Suspect]
     Active Substance: FLUDARABINE PHOSPHATE
     Indication: NON-HODGKIN^S LYMPHOMA
     Dosage: UNK UNK, UNKNOWN
     Route: 042
     Dates: start: 20181210

REACTIONS (21)
  - Metastases to diaphragm [Fatal]
  - Anaemia [Unknown]
  - Metastases to lymph nodes [Fatal]
  - Bone marrow failure [Fatal]
  - Pancytopenia [Unknown]
  - Off label use [Unknown]
  - Metastases to liver [Fatal]
  - Metastases to bone marrow [Fatal]
  - Diffuse large B-cell lymphoma [Fatal]
  - Hydronephrosis [Unknown]
  - Cellulitis [Unknown]
  - Sepsis [Fatal]
  - Retinal haemorrhage [Unknown]
  - Colitis [Unknown]
  - Metastases to spleen [Fatal]
  - Therapeutic product effect decreased [Unknown]
  - Diffuse large B-cell lymphoma refractory [Fatal]
  - Non-Hodgkin^s lymphoma [Fatal]
  - Lung infiltration [Unknown]
  - Thrombocytopenia [Unknown]
  - Febrile neutropenia [Unknown]

NARRATIVE: CASE EVENT DATE: 20181127
